FAERS Safety Report 20839334 (Version 1)
Quarter: 2022Q2

REPORT INFORMATION
  Report Type: Spontaneous
  Country: US (occurrence: US)
  Receive Date: 20220517
  Receipt Date: 20220517
  Transmission Date: 20220721
  Serious: No
  Sender: FDA-Public Use
  Company Number: US-PFIZER INC-202200709312

PATIENT
  Age: 39 Year
  Sex: Female

DRUGS (6)
  1. DOXORUBICIN HYDROCHLORIDE [Suspect]
     Active Substance: DOXORUBICIN HYDROCHLORIDE
     Dosage: UNK
  2. DACARBAZINE [Suspect]
     Active Substance: DACARBAZINE
     Dosage: UNK
  3. PEGFILGRASTIM [Suspect]
     Active Substance: PEGFILGRASTIM
     Dosage: UNK
  4. VINBLASTINE [Suspect]
     Active Substance: VINBLASTINE
     Dosage: UNK
  5. ADCETRIS [Suspect]
     Active Substance: BRENTUXIMAB VEDOTIN
     Indication: Hodgkin^s disease
     Dosage: UNK
  6. LORATADINE [Suspect]
     Active Substance: LORATADINE
     Dosage: 10 MG, 2X/DAY

REACTIONS (2)
  - Bone pain [Unknown]
  - Loss of personal independence in daily activities [Unknown]
